FAERS Safety Report 12270371 (Version 1)
Quarter: 2016Q2

REPORT INFORMATION
  Report Type: Spontaneous
  Country: None (occurrence: None)
  Receive Date: 20160414
  Receipt Date: 20160414
  Transmission Date: 20160815
  Serious: No
  Sender: FDA-Public Use
  Company Number: None

PATIENT
  Age: 55 Year
  Sex: Male

DRUGS (3)
  1. DAKLINZA [Suspect]
     Active Substance: DACLATASVIR
  2. SOVALDI [Suspect]
     Active Substance: SOFOSBUVIR
     Route: 048
  3. RIBASPHERE [Suspect]
     Active Substance: RIBAVIRIN

REACTIONS (3)
  - Nausea [None]
  - Unevaluable event [None]
  - Drug dose omission [None]

NARRATIVE: CASE EVENT DATE: 20160411
